FAERS Safety Report 6791017-0 (Version None)
Quarter: 2010Q2

REPORT INFORMATION
  Report Type: 
  Country: None (occurrence: None)
  Receive Date: 20100624
  Receipt Date: 20100618
  Transmission Date: 20101027
  Serious: Yes (Hospitalization, Other)
  Sender: FDA-Public Use
  Company Number: JP-BRISTOL-MYERS SQUIBB COMPANY-14586606

PATIENT
  Age: 66 Year
  Sex: Male
  Weight: 50 kg

DRUGS (6)
  1. ERBITUX [Suspect]
     Indication: RECTAL CANCER
     Dosage: 26NOV-03APR09(350MG) INTERRUPTED ON 30JAN09 RESTARTEDON 27FEB09 WITHDRAWN ON 03APR09
     Route: 042
     Dates: start: 20081119, end: 20090403
  2. IRINOTECAN HCL [Suspect]
     Indication: RECTAL CANCER
     Dosage: MOST RECENT INF-23JAN09. INTERRUPTED ON 30JAN09
     Route: 042
     Dates: start: 20081119, end: 20090227
  3. CHLOR-TRIMETON [Concomitant]
     Indication: PREMEDICATION
     Dosage: 1 DOSAGE FORM=1 AMPOULE.EVERYTIME BEFORE ERBITUX
     Route: 042
     Dates: start: 20081119, end: 20090403
  4. DECADRON [Concomitant]
     Indication: PREMEDICATION
     Route: 042
     Dates: start: 20081119, end: 20090403
  5. SEROTONE [Concomitant]
     Indication: PREMEDICATION
     Dosage: 2 DOSAGE FORM=2 AMPOULES
     Route: 042
     Dates: start: 20081119, end: 20090403
  6. SEROTONE [Concomitant]
     Indication: ANTIEMETIC SUPPORTIVE CARE
     Dosage: 2 DOSAGE FORM=2 AMPOULES
     Route: 042
     Dates: start: 20081119, end: 20090403

REACTIONS (2)
  - ANAEMIA [None]
  - DIARRHOEA [None]
